FAERS Safety Report 9375168 (Version 3)
Quarter: 2014Q1

REPORT INFORMATION
  Report Type: Report from Study
  Country: FR (occurrence: FR)
  Receive Date: 20130628
  Receipt Date: 20140307
  Transmission Date: 20141002
  Serious: Yes (Hospitalization)
  Sender: FDA-Public Use
  Company Number: FR-PFIZER INC-2013183347

PATIENT
  Age: 53 Year
  Sex: Male

DRUGS (8)
  1. SUTENT [Suspect]
     Indication: PHAEOCHROMOCYTOMA MALIGNANT
     Dosage: 37.5 MG, DAILY
     Route: 048
     Dates: start: 20130521, end: 20130617
  2. PLACEBO [Suspect]
     Indication: PHAEOCHROMOCYTOMA MALIGNANT
     Dosage: DAILY
     Route: 048
     Dates: start: 20130323
  3. ALDACTONE [Concomitant]
  4. PRAVASTATIN [Concomitant]
     Indication: HYPERCHOLESTEROLAEMIA
  5. LOVENOX [Concomitant]
  6. LEXOMIL [Concomitant]
  7. DUPHALAC [Concomitant]
  8. ZOPHREN [Concomitant]

REACTIONS (2)
  - Pain [Not Recovered/Not Resolved]
  - Haematemesis [Not Recovered/Not Resolved]
